FAERS Safety Report 9568222 (Version 1)
Quarter: 2013Q3

REPORT INFORMATION
  Report Type: Spontaneous
  Country: US (occurrence: US)
  Receive Date: 20130930
  Receipt Date: 20130930
  Transmission Date: 20140515
  Serious: No
  Sender: FDA-Public Use
  Company Number: US-AMGEN-USASP2013054221

PATIENT
  Age: 44 Year
  Sex: Female

DRUGS (9)
  1. ENBREL [Suspect]
     Indication: RHEUMATOID ARTHRITIS
     Dosage: 50 MG/ML, UNK
     Route: 065
     Dates: start: 20130719
  2. NAPROXEN [Concomitant]
     Dosage: 500 MG, UNK
  3. VITAMIN D                          /00107901/ [Concomitant]
     Dosage: 50000 UNIT, UNK
  4. METHOTREXATE [Concomitant]
     Dosage: 2.5 MG, UNK 7 TABS
  5. ZYRTEK [Concomitant]
     Dosage: UNK
  6. FOLIC ACID [Concomitant]
     Dosage: 1 MG, UNK
  7. MULTIVITAMINS, PLAIN [Concomitant]
     Dosage: UNK
  8. CALCIUM WITH VITAMIN D             /00944201/ [Concomitant]
     Dosage: UNK
  9. TYLENOL                            /00020001/ [Concomitant]
     Dosage: UNK

REACTIONS (3)
  - Rash erythematous [Unknown]
  - Injection site erythema [Unknown]
  - Injection site rash [Unknown]
